FAERS Safety Report 13707046 (Version 1)
Quarter: 2017Q2

REPORT INFORMATION
  Report Type: Spontaneous
  Country: DE (occurrence: DE)
  Receive Date: 20170630
  Receipt Date: 20170630
  Transmission Date: 20170830
  Serious: Yes (Other)
  Sender: FDA-Public Use
  Company Number: DE-MYLANLABS-2017M1039070

PATIENT

DRUGS (3)
  1. VINCRISTINE [Suspect]
     Active Substance: VINCRISTINE
     Indication: NEUROBLASTOMA
     Route: 065
  2. ISOTRETINOIN [Suspect]
     Active Substance: ISOTRETINOIN
     Indication: NEUROBLASTOMA
     Route: 065
  3. TRETINOIN. [Suspect]
     Active Substance: TRETINOIN
     Indication: NEUROBLASTOMA
     Dosage: 160 MG/M2/D IN 2-3 DIVIDED DOSES
     Route: 048

REACTIONS (9)
  - Dry skin [Unknown]
  - Dwarfism [Recovering/Resolving]
  - Polyneuropathy [Unknown]
  - Pain in extremity [Unknown]
  - Gait disturbance [Unknown]
  - Growth failure [Recovering/Resolving]
  - Constipation [Unknown]
  - Headache [Unknown]
  - Epiphyses premature fusion [Recovering/Resolving]
